FAERS Safety Report 4384521-6 (Version None)
Quarter: 2004Q2

REPORT INFORMATION
  Report Type: 
  Country: None (occurrence: None)
  Receive Date: 20040610
  Receipt Date: 20040326
  Transmission Date: 20050107
  Serious: No
  Sender: FDA-Public Use
  Company Number: US-JNJFOC-20040301058

PATIENT
  Age: 57 Year
  Sex: Male
  Weight: 73.9363 kg

DRUGS (8)
  1. NATRECOR [Suspect]
     Indication: CARDIAC FAILURE CONGESTIVE
     Dosage: 0.1 UG/KG/MIN, INTRAVENOUS
     Route: 042
     Dates: start: 20030623
  2. LIPITOR [Concomitant]
  3. ZOCOR [Concomitant]
  4. ACCUPRIL [Concomitant]
  5. COREG [Concomitant]
  6. COUMADIN [Concomitant]
  7. ASPIRIN TAB [Concomitant]
  8. ALDACTONE [Concomitant]

REACTIONS (2)
  - JOINT SWELLING [None]
  - MYALGIA [None]
